FAERS Safety Report 8482213-5 (Version None)
Quarter: 2012Q3

REPORT INFORMATION
  Report Type: 
  Country: None (occurrence: None)
  Receive Date: 20120702
  Receipt Date: 20120621
  Transmission Date: 20120928
  Serious: Yes (Other)
  Sender: FDA-Public Use
  Company Number: CH-ASTRAZENECA-2012SE41726

PATIENT
  Age: 45 Year
  Sex: Male

DRUGS (1)
  1. ESOMEPRAZOLE SODIUM [Suspect]
     Indication: GASTROOESOPHAGEAL REFLUX DISEASE
     Route: 048
     Dates: start: 20120416, end: 20120614

REACTIONS (4)
  - NAUSEA [None]
  - THROMBOCYTOPENIA [None]
  - CHOLESTATIC LIVER INJURY [None]
  - ABDOMINAL PAIN [None]
